FAERS Safety Report 19405534 (Version 1)
Quarter: 2021Q2

REPORT INFORMATION
  Report Type: Spontaneous
  Country: US (occurrence: US)
  Receive Date: 20210611
  Receipt Date: 20210611
  Transmission Date: 20210717
  Serious: No
  Sender: FDA-Public Use
  Company Number: US-NANJING KING-FRIEND BIOCHEMICAL PHARMACEUTICAL CO. LTD.-2021NKF00052

PATIENT
  Sex: Female

DRUGS (1)
  1. ENOXAPARIN SODIUM. [Suspect]
     Active Substance: ENOXAPARIN SODIUM
     Indication: CYTOGENETIC ABNORMALITY
     Dosage: 40 MG, 2X/DAY (EVERY 12 HOURS)
     Route: 058

REACTIONS (6)
  - Incorrect dose administered by device [Unknown]
  - Injection site pain [Not Recovered/Not Resolved]
  - Needle issue [Unknown]
  - Syringe issue [Unknown]
  - Injection site bruising [Not Recovered/Not Resolved]
  - Off label use [Unknown]

NARRATIVE: CASE EVENT DATE: 2021
